FAERS Safety Report 16681822 (Version 1)
Quarter: 2019Q3

REPORT INFORMATION
  Report Type: Spontaneous
  Country: US (occurrence: US)
  Receive Date: 20190622
  Receipt Date: 20190622
  Transmission Date: 20191004
  Serious: Yes (Hospitalization)
  Sender: FDA-Public Use
  Company Number: None

PATIENT
  Age: 8 Year
  Sex: Female
  Weight: 46 kg

DRUGS (7)
  1. DEXAMETHASONE. [Suspect]
     Active Substance: DEXAMETHASONE
     Dates: end: 20190420
  2. CYCLOPHOSPHAMIDE. [Suspect]
     Active Substance: CYCLOPHOSPHAMIDE
     Dates: end: 20190605
  3. ETOPOSIDE (VP-16) [Suspect]
     Active Substance: ETOPOSIDE
     Dates: end: 20190605
  4. METHOTREXATE. [Suspect]
     Active Substance: METHOTREXATE
     Dates: end: 20190521
  5. MERCAPTOPURINE. [Suspect]
     Active Substance: MERCAPTOPURINE
     Dates: end: 20190521
  6. VINCRISTINE SULFATE. [Suspect]
     Active Substance: VINCRISTINE SULFATE
     Dates: end: 20190416
  7. CYTARABINE. [Suspect]
     Active Substance: CYTARABINE
     Dates: end: 20190609

REACTIONS (13)
  - Hypertension [None]
  - Sinus polyp [None]
  - Febrile neutropenia [None]
  - Parainfluenzae virus infection [None]
  - Nasal congestion [None]
  - Sinusitis [None]
  - Swelling face [None]
  - Inflammation [None]
  - Complication associated with device [None]
  - Periorbital cellulitis [None]
  - Platelet transfusion [None]
  - Packed red blood cell transfusion [None]
  - Tenderness [None]

NARRATIVE: CASE EVENT DATE: 20190612
